FAERS Safety Report 5867845-2 (Version None)
Quarter: 2008Q3

REPORT INFORMATION
  Report Type: 
  Country: None (occurrence: None)
  Receive Date: 20080902
  Receipt Date: 20080822
  Transmission Date: 20090109
  Serious: Yes (Other)
  Sender: FDA-Public Use
  Company Number: JP-PFIZER INC-2008071169

PATIENT

DRUGS (1)
  1. ALDACTONE [Suspect]
     Indication: HYPOKALAEMIA
     Dosage: DAILY DOSE:50MG
     Route: 048

REACTIONS (2)
  - BLOOD ALDOSTERONE INCREASED [None]
  - RENIN INCREASED [None]
